FAERS Safety Report 8343331-5 (Version None)
Quarter: 2012Q2

REPORT INFORMATION
  Report Type: 
  Country: None (occurrence: None)
  Receive Date: 20120508
  Receipt Date: 20120503
  Transmission Date: 20120825
  Serious: Yes (Hospitalization, Disabling)
  Sender: FDA-Public Use
  Company Number: PHHO2010FR03568

PATIENT
  Sex: Male

DRUGS (7)
  1. GLUCOPHAGE [Concomitant]
  2. AMARYL [Concomitant]
  3. BACTRIM [Concomitant]
  4. VIREAD [Concomitant]
  5. TACROLIMUS [Suspect]
     Indication: LIVER TRANSPLANT
     Dosage: 1 + 1 DAILY
     Route: 048
     Dates: start: 20090305, end: 20100623
  6. NEXIUM [Concomitant]
  7. TACROLIMUS [Suspect]
     Indication: LIVER TRANSPLANT
     Dosage: 0.75 + 0.5 DAILY
     Route: 048
     Dates: start: 20090307, end: 20100623

REACTIONS (3)
  - COUGH [None]
  - OBSTRUCTIVE AIRWAYS DISORDER [None]
  - LUNG DISORDER [None]
